FAERS Safety Report 10388931 (Version 1)
Quarter: 2014Q1

REPORT INFORMATION
  Report Type: Spontaneous
  Country: US (occurrence: None)
  Receive Date: 20140306
  Receipt Date: 20140306
  Transmission Date: 20141002
  Serious: Yes (Other)
  Sender: FDA-Public Use
  Company Number: 163-21880-13115095

PATIENT
  Age: 64 Year
  Sex: Male

DRUGS (5)
  1. REVLIMID (LENALIDOMIDE) (25 MILLIGRAM, CAPSULES) [Suspect]
     Indication: PLASMA CELL MYELOMA
     Route: 048
     Dates: start: 201310
  2. ASPIRIN (ACETYLSALICYLIC ACID) [Concomitant]
  3. FINASTERIDE [Concomitant]
  4. HCTZ/TRIAMTERENE (DYAZIDE) [Concomitant]
  5. AMLODIPINE BESYLATE (AMLODIPINE BESILATE) [Concomitant]

REACTIONS (1)
  - Deep vein thrombosis [None]
